FAERS Safety Report 8313878-6 (Version None)
Quarter: 2012Q2

REPORT INFORMATION
  Report Type: 
  Country: None (occurrence: None)
  Receive Date: 20120426
  Receipt Date: 20120416
  Transmission Date: 20120825
  Serious: Yes (Other)
  Sender: FDA-Public Use
  Company Number: BR-JNJFOC-20120408701

PATIENT
  Age: 34 Year
  Sex: Female

DRUGS (8)
  1. INVEGA SUSTENNA [Suspect]
     Route: 030
     Dates: start: 20120215
  2. INVEGA SUSTENNA [Suspect]
     Indication: AFFECTIVE DISORDER
     Route: 030
     Dates: start: 20120329
  3. INVEGA SUSTENNA [Suspect]
     Route: 030
     Dates: start: 20120329
  4. INVEGA SUSTENNA [Suspect]
     Route: 030
     Dates: start: 20120223
  5. INVEGA SUSTENNA [Suspect]
     Route: 030
     Dates: start: 20120215
  6. INVEGA SUSTENNA [Suspect]
     Route: 030
  7. INVEGA SUSTENNA [Suspect]
     Indication: BIPOLAR DISORDER
     Route: 030
  8. INVEGA SUSTENNA [Suspect]
     Route: 030
     Dates: start: 20120223

REACTIONS (4)
  - EXPRESSIVE LANGUAGE DISORDER [None]
  - EXTRAPYRAMIDAL DISORDER [None]
  - RESTLESS LEGS SYNDROME [None]
  - BLOOD PROLACTIN INCREASED [None]
